FAERS Safety Report 4622348-8 (Version None)
Quarter: 2005Q1

REPORT INFORMATION
  Report Type: 
  Country: None (occurrence: None)
  Receive Date: 20050325
  Receipt Date: 20050325
  Transmission Date: 20050727
  Serious: Yes (Other)
  Sender: FDA-Public Use
  Company Number: None

PATIENT
  Sex: Male
  Weight: 153 kg

DRUGS (3)
  1. BUSULFAN [Suspect]
     Dosage: 1 MG/KG PO Q6H X 16 DOSES ON DAYS -7 TO -4.
     Route: 048
     Dates: start: 20050209, end: 20050209
  2. ETOPOSIDE [Suspect]
     Dosage: 60 MG/KG (TOTAL DOSE) IV OVER 4 HOURS ON DAY -3
     Route: 042
     Dates: start: 20050209, end: 20050209
  3. G-CSF [Suspect]
     Dosage: 5MCG/KG/DAY (ACTUAL BODY WEIGHT) SC
     Route: 058
     Dates: start: 20050209, end: 20050209

REACTIONS (4)
  - DYSPNOEA AT REST [None]
  - OROPHARYNGEAL SWELLING [None]
  - PHARYNGEAL HAEMORRHAGE [None]
  - STOMATITIS [None]
